FAERS Safety Report 6255167-X (Version None)
Quarter: 2009Q3

REPORT INFORMATION
  Report Type: 
  Country: None (occurrence: None)
  Receive Date: 20090702
  Receipt Date: 20090629
  Transmission Date: 20100115
  Serious: Yes (Death, Other)
  Sender: FDA-Public Use
  Company Number: PHHY2009FR26351

PATIENT
  Sex: Male

DRUGS (5)
  1. TEGRETOL [Suspect]
  2. NOZINAN [Suspect]
  3. CLONAZEPAM [Suspect]
  4. GARDENAL [Suspect]
  5. THERALENE [Suspect]

REACTIONS (2)
  - CARDIAC FAILURE ACUTE [None]
  - SUDDEN DEATH [None]
